FAERS Safety Report 5819086-2 (Version None)
Quarter: 2008Q3

REPORT INFORMATION
  Report Type: 
  Country: None (occurrence: None)
  Receive Date: 20080723
  Receipt Date: 20080723
  Transmission Date: 20090109
  Serious: Yes (Other)
  Sender: FDA-Public Use
  Company Number: A0739079A

PATIENT
  Age: 34 Year
  Sex: Female

DRUGS (3)
  1. ALLI [Suspect]
     Indication: DRUG USE FOR UNKNOWN INDICATION
     Dates: start: 20080701, end: 20080701
  2. BENADRYL [Suspect]
  3. NONE [Concomitant]

REACTIONS (7)
  - ABDOMINAL PAIN [None]
  - HEPATIC ENZYME INCREASED [None]
  - JAUNDICE [None]
  - MALAISE [None]
  - PANCREATIC ENZYMES INCREASED [None]
  - PANCREATITIS ACUTE [None]
  - PRURITUS GENERALISED [None]
